FAERS Safety Report 5864821-0 (Version None)
Quarter: 2008Q3

REPORT INFORMATION
  Report Type: 
  Country: None (occurrence: None)
  Receive Date: 20080829
  Receipt Date: 20080718
  Transmission Date: 20090109
  Serious: No
  Sender: FDA-Public Use
  Company Number: US-ABBOTT-08P-163-0464301-00

PATIENT
  Sex: Male
  Weight: 79.45 kg

DRUGS (2)
  1. SIMCOR [Suspect]
     Indication: DYSLIPIDAEMIA
     Dosage: 500/20 MG
     Route: 048
     Dates: start: 20080618
  2. EYE DROPS [Concomitant]
     Indication: GLAUCOMA

REACTIONS (1)
  - FEELING HOT [None]
